FAERS Safety Report 25949261 (Version 1)
Quarter: 2025Q4

REPORT INFORMATION
  Report Type: Spontaneous
  Country: US (occurrence: US)
  Receive Date: 20251022
  Receipt Date: 20251022
  Transmission Date: 20260117
  Serious: No
  Sender: ELI LILLY AND COMPANY
  Company Number: US-ELI_LILLY_AND_COMPANY-US202510007720

PATIENT
  Age: 63 Year
  Sex: Female

DRUGS (2)
  1. VERZENIO [Suspect]
     Active Substance: ABEMACICLIB
     Indication: Breast cancer female
     Dosage: 150 MG, BID
     Route: 048
     Dates: start: 20250926
  2. FULVESTRANT [Suspect]
     Active Substance: FULVESTRANT
     Indication: Product used for unknown indication
     Dosage: UNK UNK, UNKNOWN
     Route: 065
     Dates: start: 20250924

REACTIONS (6)
  - Urticaria [Unknown]
  - Bone pain [Unknown]
  - Hepatic pain [Unknown]
  - Hepatomegaly [Unknown]
  - Blister rupture [Unknown]
  - Blister [Unknown]

NARRATIVE: CASE EVENT DATE: 20250930
